FAERS Safety Report 8249779-1 (Version None)
Quarter: 2012Q2

REPORT INFORMATION
  Report Type: 
  Country: None (occurrence: None)
  Receive Date: 20120402
  Receipt Date: 20120318
  Transmission Date: 20120825
  Serious: Yes (Hospitalization)
  Sender: FDA-Public Use
  Company Number: PHHY2012DE027569

PATIENT
  Sex: Male

DRUGS (1)
  1. GLEEVEC [Suspect]
     Indication: GASTROINTESTINAL STROMAL TUMOUR
     Dosage: 400 MG/ DAY
     Route: 048
     Dates: start: 20110801

REACTIONS (6)
  - GASTROINTESTINAL STROMAL TUMOUR [None]
  - ANAEMIA [None]
  - GASTRIC HAEMORRHAGE [None]
  - CIRCULATORY COLLAPSE [None]
  - METASTASES TO LIVER [None]
  - NEOPLASM RECURRENCE [None]
